FAERS Safety Report 7786441-3 (Version None)
Quarter: 2011Q3

REPORT INFORMATION
  Report Type: 
  Country: None (occurrence: None)
  Receive Date: 20110927
  Receipt Date: 20110927
  Transmission Date: 20111222
  Serious: Yes (Other)
  Sender: FDA-Public Use
  Company Number: None

PATIENT
  Age: 37 Year
  Sex: Female
  Weight: 97.3 kg

DRUGS (2)
  1. TRI-PREVIFEM [Suspect]
     Indication: CONTRACEPTION
     Dosage: STANDARD DOSE DAILY ORAL 047
     Route: 048
  2. TRI-PREVIFEM [Suspect]

REACTIONS (3)
  - PRODUCT PACKAGING ISSUE [None]
  - PREGNANCY ON ORAL CONTRACEPTIVE [None]
  - PRODUCT QUALITY ISSUE [None]
